FAERS Safety Report 7015562-8 (Version None)
Quarter: 2010Q3

REPORT INFORMATION
  Report Type: 
  Country: None (occurrence: None)
  Receive Date: 20100923
  Receipt Date: 20100917
  Transmission Date: 20110219
  Serious: Yes (Death)
  Sender: FDA-Public Use
  Company Number: 2010US003812

PATIENT
  Age: 38 Year
  Sex: Male

DRUGS (1)
  1. AMBISOME [Suspect]
     Indication: ACUTE MYELOID LEUKAEMIA
     Dosage: 150 MG, UID/QD, IV NOS
     Route: 042
     Dates: start: 20100801, end: 20100910

REACTIONS (2)
  - ACUTE MYELOID LEUKAEMIA [None]
  - CONDITION AGGRAVATED [None]
